FAERS Safety Report 9822130 (Version 1)
Quarter: 2014Q1

REPORT INFORMATION
  Report Type: Spontaneous
  Country: MX (occurrence: MX)
  Receive Date: 20140116
  Receipt Date: 20140116
  Transmission Date: 20141002
  Serious: Yes (Other)
  Sender: FDA-Public Use
  Company Number: MX-GLAXOSMITHKLINE-A1056797A

PATIENT
  Age: 79 Year
  Sex: Female
  Weight: 51 kg

DRUGS (10)
  1. SERETIDE [Suspect]
     Indication: BRONCHITIS
     Dosage: 6PUFF PER DAY
     Dates: start: 20130915, end: 201310
  2. MONTELUKAST [Suspect]
     Indication: PRODUCT USED FOR UNKNOWN INDICATION
     Dosage: 10MG UNKNOWN
  3. B-12 [Suspect]
     Indication: PRODUCT USED FOR UNKNOWN INDICATION
  4. GLIOTEN [Concomitant]
  5. LOPRESOR [Concomitant]
  6. DIOVAN [Concomitant]
  7. CALCIUM [Concomitant]
  8. LORATADINE [Concomitant]
  9. UNSPECIFIED MEDICATION [Concomitant]
  10. VIRLIX [Concomitant]

REACTIONS (5)
  - Poisoning [Not Recovered/Not Resolved]
  - Oedema mouth [Not Recovered/Not Resolved]
  - Swollen tongue [Not Recovered/Not Resolved]
  - Urticaria [Not Recovered/Not Resolved]
  - Pruritus [Not Recovered/Not Resolved]
